FAERS Safety Report 18116901 (Version 1)
Quarter: 2020Q3

REPORT INFORMATION
  Report Type: Spontaneous
  Country: GB (occurrence: GB)
  Receive Date: 20200806
  Receipt Date: 20200806
  Transmission Date: 20201103
  Serious: Yes (Life-Threatening, Hospitalization)
  Sender: FDA-Public Use
  Company Number: GB-ROCHE-2654336

PATIENT
  Age: 30 Year
  Sex: Female
  Weight: 74.4 kg

DRUGS (29)
  1. LEVOTHYROXINE SODIUM. [Concomitant]
     Active Substance: LEVOTHYROXINE SODIUM
  2. PREGABALIN. [Concomitant]
     Active Substance: PREGABALIN
  3. NIFEDIPINE. [Concomitant]
     Active Substance: NIFEDIPINE
  4. FLUOXETINE [Concomitant]
     Active Substance: FLUOXETINE HYDROCHLORIDE
  5. COLECALCIFEROL [Concomitant]
     Active Substance: CHOLECALCIFEROL
  6. DOCUSATE [Concomitant]
     Active Substance: DOCUSATE
  7. SILDENAFIL. [Concomitant]
     Active Substance: SILDENAFIL
  8. AMITRIPTYLINE [Concomitant]
     Active Substance: AMITRIPTYLINE
  9. MORPHINE [Concomitant]
     Active Substance: MORPHINE
  10. MEPACRINE [Concomitant]
     Active Substance: QUINACRINE
  11. DESOGESTREL [Concomitant]
     Active Substance: DESOGESTREL
  12. RITUXIMAB. [Suspect]
     Active Substance: RITUXIMAB
     Indication: SYSTEMIC LUPUS ERYTHEMATOSUS
     Route: 042
     Dates: start: 20200625, end: 20200626
  13. FEXOFENADINE HYDROCHLORIDE. [Concomitant]
     Active Substance: FEXOFENADINE HYDROCHLORIDE
  14. ACICLOVIR [Concomitant]
     Active Substance: ACYCLOVIR
  15. HYDROXYCHLOROQUINE SULFATE. [Concomitant]
     Active Substance: HYDROXYCHLOROQUINE SULFATE
  16. ZOPICLONE [Concomitant]
     Active Substance: ZOPICLONE
  17. TACROLIMUS. [Concomitant]
     Active Substance: TACROLIMUS
  18. PARACETAMOL [Concomitant]
     Active Substance: ACETAMINOPHEN
  19. OMEPRAZOLE. [Concomitant]
     Active Substance: OMEPRAZOLE
  20. BECLOMETASONE DIPROPIONATE [Concomitant]
     Active Substance: BECLOMETHASONE DIPROPIONATE
  21. SODIUM PIDOLATE [Concomitant]
  22. PREDNISOLONE. [Concomitant]
     Active Substance: PREDNISOLONE
  23. BETAMETHASONE VALERATE. [Concomitant]
     Active Substance: BETAMETHASONE VALERATE
  24. DERMOVATE [Concomitant]
     Active Substance: CLOBETASOL
  25. TRAMADOL. [Concomitant]
     Active Substance: TRAMADOL
  26. MYCOPHENOLIC ACID. [Suspect]
     Active Substance: MYCOPHENOLIC ACID
     Indication: SYSTEMIC LUPUS ERYTHEMATOSUS
     Route: 048
     Dates: start: 20200619
  27. BIOTENE DRY MOUTH (UNITED KINGDOM) [Concomitant]
  28. FUCIBET [Concomitant]
  29. GLYCEROL [Concomitant]
     Active Substance: GLYCERIN

REACTIONS (6)
  - Periorbital swelling [Unknown]
  - Rash macular [Unknown]
  - Mouth ulceration [Unknown]
  - Skin exfoliation [Unknown]
  - Malaise [Unknown]
  - Stevens-Johnson syndrome [Not Recovered/Not Resolved]

NARRATIVE: CASE EVENT DATE: 20200626
